FAERS Safety Report 23120265 (Version 1)
Quarter: 2023Q4

REPORT INFORMATION
  Report Type: Spontaneous
  Country: US (occurrence: US)
  Receive Date: 20231029
  Receipt Date: 20231029
  Transmission Date: 20240109
  Serious: No
  Sender: FDA-Public Use
  Company Number: US-TEVA-2023-US-2937591

PATIENT
  Sex: Male

DRUGS (1)
  1. BUPRENORPHINE HYDROCHLORIDE [Suspect]
     Active Substance: BUPRENORPHINE HYDROCHLORIDE
     Indication: Procedural pain
     Dosage: SUBLINGUAL TABLETS, 2 MG (BASE) AND 8 MG (BASE)
     Route: 060

REACTIONS (1)
  - Drug ineffective [Unknown]
